FAERS Safety Report 11361861 (Version 1)
Quarter: 2015Q3

REPORT INFORMATION
  Report Type: Spontaneous
  Country: FR (occurrence: FR)
  Receive Date: 20150810
  Receipt Date: 20150810
  Transmission Date: 20151125
  Serious: Yes (Other)
  Sender: FDA-Public Use
  Company Number: FR-GLAXOSMITHKLINE-FR2015GSK113001

PATIENT
  Age: 62 Year
  Sex: Male

DRUGS (1)
  1. ALKERAN [Suspect]
     Active Substance: MELPHALAN
     Indication: TRANSPLANT
     Dosage: UNK
     Route: 042
     Dates: start: 20150119, end: 20150119

REACTIONS (1)
  - Aplasia [Recovered/Resolved]

NARRATIVE: CASE EVENT DATE: 20150128
